FAERS Safety Report 6442369-2 (Version None)
Quarter: 2009Q4

REPORT INFORMATION
  Report Type: 
  Country: None (occurrence: None)
  Receive Date: 20091112
  Receipt Date: 20091027
  Transmission Date: 20100525
  Serious: Yes (Other)
  Sender: FDA-Public Use
  Company Number: 2009003182

PATIENT
  Sex: Male
  Weight: 86.8 kg

DRUGS (12)
  1. ERLOTINIB HYDROCHLORIDE [Suspect]
     Indication: OESOPHAGEAL CARCINOMA
     Dosage: (100 MG,QD),ORAL
     Route: 048
     Dates: start: 20090910
  2. BEVACIZUMAB(INJECTION FOR INFUSION) [Suspect]
     Indication: OESOPHAGEAL CARCINOMA
     Dosage: (15 MG/KG), INTRAVENOUS
     Route: 042
     Dates: start: 20090910
  3. BEVACIZUMAB(INJECTION FOR INFUSION) [Suspect]
  4. CARBOPLATIN [Suspect]
     Indication: OESOPHAGEAL CARCINOMA
     Dosage: (687 MG)
     Dates: start: 20090910
  5. TAXOL [Suspect]
     Indication: OESOPHAGEAL CARCINOMA
     Dosage: (428 MG)
     Dates: start: 20090910
  6. FLUOROURACIL [Suspect]
     Indication: OESOPHAGEAL CARCINOMA
     Dosage: (3371 MG)
     Dates: start: 20090910
  7. LEVAQUIN [Concomitant]
  8. CEFEPIME [Concomitant]
  9. VANCOMYCIN [Concomitant]
  10. ARIXTRA [Concomitant]
  11. NYSTATIN [Concomitant]
  12. NEUPOGEN [Concomitant]

REACTIONS (6)
  - DEHYDRATION [None]
  - FEBRILE NEUTROPENIA [None]
  - MUCOSAL INFLAMMATION [None]
  - RED BLOOD CELLS URINE POSITIVE [None]
  - WHITE BLOOD CELL COUNT DECREASED [None]
  - WHITE BLOOD CELLS URINE POSITIVE [None]
